FAERS Safety Report 5416563-3 (Version None)
Quarter: 2007Q3

REPORT INFORMATION
  Report Type: 
  Country: None (occurrence: None)
  Receive Date: 20070814
  Receipt Date: 20070814
  Transmission Date: 20080115
  Serious: No
  Sender: FDA-Public Use
  Company Number: None

PATIENT
  Age: 51 Year
  Sex: Male
  Weight: 122.7 kg

DRUGS (1)
  1. FAMOTIDINE 20 MG UDL [Suspect]
     Indication: CARDIAC FAILURE
     Dosage: 20 MG DAILY PO
     Route: 048
     Dates: start: 20061227, end: 20070103

REACTIONS (1)
  - THROMBOCYTOPENIA [None]
